FAERS Safety Report 6020696-0 (Version None)
Quarter: 2008Q4

REPORT INFORMATION
  Report Type: 
  Country: None (occurrence: None)
  Receive Date: 20081222
  Receipt Date: 20081209
  Transmission Date: 20090506
  Serious: Yes (Death, Hospitalization, Other)
  Sender: FDA-Public Use
  Company Number: 55013

PATIENT
  Age: 21 Year
  Sex: Female

DRUGS (1)
  1. ADRIAMYCIN PFS [Suspect]
     Indication: PRIMARY MEDIASTINAL LARGE B-CELL LYMPHOMA

REACTIONS (8)
  - ACUTE HEPATIC FAILURE [None]
  - CONDITION AGGRAVATED [None]
  - ENCEPHALOPATHY [None]
  - HAEMORRHAGE [None]
  - HEPATITIS B [None]
  - LUNG INJURY [None]
  - RENAL FAILURE [None]
  - SEPSIS [None]
